FAERS Safety Report 6644650-0 (Version None)
Quarter: 2010Q1

REPORT INFORMATION
  Report Type: 
  Country: None (occurrence: None)
  Receive Date: 20100322
  Receipt Date: 20100316
  Transmission Date: 20100710
  Serious: Yes (Disabling)
  Sender: FDA-Public Use
  Company Number: GB-MERCK-1003GBR00087

PATIENT
  Age: 73 Year
  Sex: Female

DRUGS (7)
  1. FOSAMAX [Suspect]
     Route: 048
  2. AMITRIPTYLINE HYDROCHLORIDE [Concomitant]
     Route: 065
  3. AMLODIPINE [Concomitant]
     Route: 065
  4. CALCIUM CARBONATE AND SODIUM ALGINATE AND SODIUM BICARBONATE [Concomitant]
     Route: 065
  5. BOSENTAN [Concomitant]
     Route: 065
  6. LANSOPRAZOLE [Concomitant]
     Route: 065
  7. WARFARIN [Concomitant]
     Route: 065

REACTIONS (4)
  - GINGIVAL SWELLING [None]
  - IMPAIRED HEALING [None]
  - ORAL INFECTION [None]
  - OSTEONECROSIS [None]
